FAERS Safety Report 12099077 (Version 2)
Quarter: 2016Q2

REPORT INFORMATION
  Report Type: Spontaneous
  Country: IT (occurrence: IT)
  Receive Date: 20160222
  Receipt Date: 20160419
  Transmission Date: 20160815
  Serious: Yes (Death, Hospitalization)
  Sender: FDA-Public Use
  Company Number: PHHY2016IT021843

PATIENT
  Age: 67 Year
  Sex: Female

DRUGS (2)
  1. AROMASIN [Concomitant]
     Active Substance: EXEMESTANE
     Indication: BREAST CANCER
     Dosage: 25 MG, UNK
     Route: 048
  2. AFINITOR [Suspect]
     Active Substance: EVEROLIMUS
     Indication: BREAST CANCER
     Dosage: 5 MG, QD
     Route: 048
     Dates: start: 20151212, end: 20160108

REACTIONS (8)
  - Blood creatinine increased [Fatal]
  - Mucosal inflammation [Unknown]
  - Oedema mouth [Fatal]
  - Dehydration [Unknown]
  - Chest pain [Fatal]
  - Oedema peripheral [Fatal]
  - Renal failure [Fatal]
  - Eye oedema [Fatal]

NARRATIVE: CASE EVENT DATE: 20160108
